FAERS Safety Report 11712877 (Version 2)
Quarter: 2015Q4

REPORT INFORMATION
  Report Type: Report from Study
  Country: US (occurrence: US)
  Receive Date: 20151108
  Receipt Date: 20151201
  Transmission Date: 20160304
  Serious: Yes (Other)
  Sender: FDA-Public Use
  Company Number: US-AMGEN-USASP2015115973

PATIENT
  Age: 75 Year
  Sex: Female

DRUGS (1)
  1. REPATHA [Suspect]
     Active Substance: EVOLOCUMAB
     Indication: PRODUCT USED FOR UNKNOWN INDICATION
     Dosage: UNK
     Route: 065

REACTIONS (7)
  - Feeling abnormal [Unknown]
  - Injection site haemorrhage [Unknown]
  - Feeling hot [Recovering/Resolving]
  - Blood pressure systolic increased [Unknown]
  - Hypoaesthesia [Recovering/Resolving]
  - Product taste abnormal [Unknown]
  - Dry throat [Unknown]
